FAERS Safety Report 17815585 (Version 1)
Quarter: 2020Q2

REPORT INFORMATION
  Report Type: Spontaneous
  Country: US (occurrence: US)
  Receive Date: 20200521
  Receipt Date: 20200521
  Transmission Date: 20200714
  Serious: Yes (Disabling, Other)
  Sender: FDA-Public Use
  Company Number: None

PATIENT
  Age: 66 Year
  Sex: Female
  Weight: 64.35 kg

DRUGS (15)
  1. BUPROPION XL [Concomitant]
     Active Substance: BUPROPION
  2. AMLODIPINE [Concomitant]
     Active Substance: AMLODIPINE BESYLATE
  3. LEVOTHYROXINE. [Concomitant]
     Active Substance: LEVOTHYROXINE
  4. MAGNESIUM [Concomitant]
     Active Substance: MAGNESIUM
  5. PROLIA [Suspect]
     Active Substance: DENOSUMAB
     Indication: BONE DENSITY ABNORMAL
     Dosage: ?          OTHER FREQUENCY:EVERY SIX MONTHS I;?
     Route: 042
     Dates: start: 20190107, end: 20200105
  6. PROLIA [Concomitant]
     Active Substance: DENOSUMAB
  7. VITAMIN D3 [Concomitant]
     Active Substance: CHOLECALCIFEROL
  8. OCTIVITE [Concomitant]
  9. METHOCARBAM [Concomitant]
     Active Substance: METHOCARBAMOL
  10. CALCIUM 600 WITH D [Concomitant]
  11. ASPIRIN 81MG [Concomitant]
     Active Substance: ASPIRIN
  12. LOSARTAN. [Concomitant]
     Active Substance: LOSARTAN
  13. CENTRUM SILVER [Concomitant]
     Active Substance: MINERALS\VITAMINS
  14. B-COMPLEX WITH C [Concomitant]
  15. TRAZODONE [Concomitant]
     Active Substance: TRAZODONE HYDROCHLORIDE

REACTIONS (9)
  - Ear pain [None]
  - Fatigue [None]
  - Blood pressure increased [None]
  - Arthralgia [None]
  - Pain in jaw [None]
  - Deafness [None]
  - Myalgia [None]
  - Headache [None]
  - Asthenia [None]

NARRATIVE: CASE EVENT DATE: 20191205
